FAERS Safety Report 14269361 (Version 1)
Quarter: 2017Q4

REPORT INFORMATION
  Report Type: Spontaneous
  Country: US (occurrence: US)
  Receive Date: 20171211
  Receipt Date: 20171211
  Transmission Date: 20180321
  Serious: Yes (Hospitalization, Other)
  Sender: FDA-Public Use
  Company Number: US-PFIZER INC-2017518841

PATIENT
  Age: 67 Year
  Sex: Female

DRUGS (30)
  1. IBRANCE [Suspect]
     Active Substance: PALBOCICLIB
     Indication: BREAST CANCER
     Dosage: 125 MG, CYCLIC  (DAILY X 21 DAYS EVERY FOUR WEEKS)
     Route: 048
     Dates: start: 20161121, end: 20171024
  2. NEURONTIN [Concomitant]
     Active Substance: GABAPENTIN
     Dosage: 300 MG, 3X/DAY
     Route: 048
  3. PREDNISONE. [Concomitant]
     Active Substance: PREDNISONE
     Dosage: 30 MG, UNK [5 DAYS]
     Dates: start: 20171020
  4. PERCOCET [Concomitant]
     Active Substance: ACETAMINOPHEN\OXYCODONE HYDROCHLORIDE
     Dosage: 1 DF, AS NEEDED (EVERY 6 HOURS AS NEEDED]/[OXYCODONE HYDROCHLORIDE: 325 MG]/[PARACETAMOL: 5 MG)
     Route: 048
  5. DELTASONE [Concomitant]
     Active Substance: PREDNISONE
     Dosage: 40 MG, UNK [4 TABS X 5 DAYS]
  6. PERI-COLACE [Concomitant]
     Active Substance: CASANTHRANOL\DOCUSATE SODIUM
     Dosage: 1 DF, DAILY (DOCUSATE SODIUM: 8.6 MG]/[SENNOSIDE A+B: 50 MG)
     Route: 048
  7. AMBIEN [Concomitant]
     Active Substance: ZOLPIDEM TARTRATE
     Dosage: 10 MG, DAILY
     Route: 048
  8. CALCIUM + VIT D [Concomitant]
     Active Substance: CALCIUM\VITAMIN D
     Dosage: 1 DF, DAILY (CALCIUM-VITAMIN D 500 (1,250 MG) - 200 UNIT)
     Route: 048
  9. FASLODEX [Concomitant]
     Active Substance: FULVESTRANT
     Dosage: 500 MG, CYCLIC (EVERY 28 DAYS)
     Route: 030
  10. PRINIVIL [Concomitant]
     Active Substance: LISINOPRIL
     Dosage: 10 MG, DAILY
     Route: 048
  11. BYSTOLIC [Concomitant]
     Active Substance: NEBIVOLOL HYDROCHLORIDE
     Dosage: 5 MG, DAILY
     Route: 048
  12. PALBOCICLIB [Concomitant]
     Active Substance: PALBOCICLIB
     Dosage: 125 MG, CYCLIC (ONE TABLET (125 MG) DAILY FOR 21 DAYS THEN ONE WEEK OFF)
     Route: 048
     Dates: start: 20171101
  13. FASLODEX [Concomitant]
     Active Substance: FULVESTRANT
     Dosage: UNK, AS NEEDED
     Route: 030
  14. PREDNISONE. [Concomitant]
     Active Substance: PREDNISONE
     Dosage: 40 MG, UNK [5 DAYS]
     Dates: start: 20171020
  15. PREDNISONE. [Concomitant]
     Active Substance: PREDNISONE
     Dosage: 20 MG, UNK [5 DAYS]
     Dates: start: 20171020
  16. BYSTOLIC [Concomitant]
     Active Substance: NEBIVOLOL HYDROCHLORIDE
     Dosage: 2.5 MG, 1X/DAY
  17. ZESTRIL [Concomitant]
     Active Substance: LISINOPRIL
     Dosage: 10 MG, DAILY
     Route: 048
  18. PROTONIX [Concomitant]
     Active Substance: PANTOPRAZOLE SODIUM
     Dosage: 40 MG, DAILY
     Route: 048
  19. GABAPENTIN. [Concomitant]
     Active Substance: GABAPENTIN
     Dosage: 300 MG, 3X/DAY
  20. PREDNISONE. [Concomitant]
     Active Substance: PREDNISONE
     Dosage: 50 MG, UNK [5 DAYS]
     Dates: start: 20171020
  21. ELAVIL [Concomitant]
     Active Substance: AMITRIPTYLINE HYDROCHLORIDE
     Dosage: 20 MG, 1X/DAY (NIGHTLY)
     Route: 048
  22. DELTASONE [Concomitant]
     Active Substance: PREDNISONE
     Dosage: 30 MG, UNK [3 TABS X 5 DAYS]
  23. AMITRIPTYLINE [Concomitant]
     Active Substance: AMITRIPTYLINE
     Dosage: 10 MG, 1X/DAY
  24. PREDNISONE. [Concomitant]
     Active Substance: PREDNISONE
     Dosage: 10 MG, 1X/DAY
     Dates: start: 20171020
  25. PROLIA [Concomitant]
     Active Substance: DENOSUMAB
     Dosage: 120 MG, MONTHLY (EVERY 4 WEEKS X 4 CYCLES)
     Route: 058
  26. DELTASONE [Concomitant]
     Active Substance: PREDNISONE
     Dosage: 20 MG, UNK [2 TABS X 5 DAYS]
  27. LISINOPRIL. [Concomitant]
     Active Substance: LISINOPRIL
  28. PREDNISONE. [Concomitant]
     Active Substance: PREDNISONE
     Dosage: 60 MG, UNK [5 DAYS]
     Dates: start: 20171020
  29. DELTASONE [Concomitant]
     Active Substance: PREDNISONE
     Dosage: 10 MG, UNK [1 TABS X 5 DAYS]
  30. CRESTOR [Concomitant]
     Active Substance: ROSUVASTATIN CALCIUM
     Dosage: 10 MG, DAILY
     Route: 048

REACTIONS (17)
  - Deafness [Unknown]
  - Chills [Unknown]
  - Hot flush [Unknown]
  - Appetite disorder [Recovering/Resolving]
  - Dizziness [Unknown]
  - Fatigue [Recovering/Resolving]
  - Weight abnormal [Unknown]
  - Constipation [Unknown]
  - Nervousness [Unknown]
  - Anaemia [Unknown]
  - Headache [Unknown]
  - Hyponatraemia [Unknown]
  - Dysphoria [Unknown]
  - Sleep disorder [Unknown]
  - Asthenia [Recovering/Resolving]
  - Pain [Recovering/Resolving]
  - Back pain [Unknown]

NARRATIVE: CASE EVENT DATE: 20170605
